FAERS Safety Report 8145149-5 (Version None)
Quarter: 2012Q1

REPORT INFORMATION
  Report Type: 
  Country: None (occurrence: None)
  Receive Date: 20120217
  Receipt Date: 20120213
  Transmission Date: 20120608
  Serious: Yes (Hospitalization)
  Sender: FDA-Public Use
  Company Number: PHHY2011JP111341

PATIENT
  Age: 81 Year
  Sex: Female

DRUGS (8)
  1. DIOVAN [Suspect]
     Dosage: 80 MG, QD
     Route: 048
     Dates: start: 20110101, end: 20111025
  2. WARFARIN [Concomitant]
  3. DIOVAN [Suspect]
     Dosage: 80 MG, BID
     Route: 048
     Dates: start: 20111026, end: 20111219
  4. LASIX [Concomitant]
  5. DISOPYRAMIDE PHOSPHATE [Concomitant]
  6. BISOPROLOL FUMARATE [Concomitant]
  7. CEFAZOLIN SODIUM [Concomitant]
  8. DEPAS [Concomitant]

REACTIONS (2)
  - INTERSTITIAL LUNG DISEASE [None]
  - BLOOD PRESSURE FLUCTUATION [None]
